FAERS Safety Report 4370369-5 (Version None)
Quarter: 2004Q2

REPORT INFORMATION
  Report Type: 
  Country: None (occurrence: None)
  Receive Date: 20040603
  Receipt Date: 20040218
  Transmission Date: 20050107
  Serious: Yes (Hospitalization)
  Sender: FDA-Public Use
  Company Number: US-BRISTOL-MYERS SQUIBB COMPANY-12511226

PATIENT
  Age: 28 Year
  Sex: Female
  Weight: 71 kg

DRUGS (5)
  1. ABILIFY [Suspect]
     Indication: SCHIZOPHRENIA
     Route: 048
     Dates: start: 20030901, end: 20040115
  2. ABILIFY [Suspect]
     Indication: DEPRESSION
     Route: 048
     Dates: start: 20030901, end: 20040115
  3. AZMACORT [Concomitant]
     Dosage: 2 PUFFS TWICE DAILY
     Route: 055
  4. ALBUTEROL [Concomitant]
     Dosage: 2 PUFFS EVERY 6 HOURS AS NEEDED
     Route: 055
  5. IBUPROFEN [Concomitant]
     Dates: start: 20031210

REACTIONS (1)
  - RHABDOMYOLYSIS [None]
